FAERS Safety Report 8555191-8 (Version None)
Quarter: 2012Q3

REPORT INFORMATION
  Report Type: 
  Country: None (occurrence: None)
  Receive Date: 20120731
  Receipt Date: 20120723
  Transmission Date: 20120928
  Serious: Yes (Other)
  Sender: FDA-Public Use
  Company Number: US-ABBOTT-12P-163-0961951-00

PATIENT
  Age: 62 Year
  Sex: Male
  Weight: 55.388 kg

DRUGS (9)
  1. ANDROGEL [Suspect]
     Indication: BLOOD TESTOSTERONE DECREASED
     Dosage: STOPPED IT SINCE LAST THUR SINCE SEVERE ATTACK, 2 PUMPS DAILY
     Route: 061
     Dates: end: 20120719
  2. ISENTRESS [Concomitant]
     Indication: HIV INFECTION
     Dosage: TWICE DAILY
     Route: 048
  3. TRUVADA [Concomitant]
     Indication: HIV INFECTION
     Route: 048
  4. ANDROGEL [Suspect]
     Indication: MUSCLE ATROPHY
  5. VICODIN [Concomitant]
     Indication: PAIN
  6. SELZENTRY [Concomitant]
     Indication: HIV INFECTION
     Dosage: TWICE DAILY
     Route: 048
  7. ANDROGEL [Suspect]
     Indication: WEIGHT INCREASED
  8. CYMBALTA [Concomitant]
     Indication: PRODUCT USED FOR UNKNOWN INDICATION
  9. SULSAMETHOXAZOLE/TRIMETHOPRIM [Concomitant]
     Indication: HIV INFECTION
     Route: 048

REACTIONS (8)
  - MOBILITY DECREASED [None]
  - MYALGIA [None]
  - TESTICULAR PAIN [None]
  - NERVE COMPRESSION [None]
  - POLLAKIURIA [None]
  - DYSURIA [None]
  - ARTHRALGIA [None]
  - DEHYDRATION [None]
